FAERS Safety Report 7209797-9 (Version None)
Quarter: 2011Q1

REPORT INFORMATION
  Report Type: 
  Country: None (occurrence: None)
  Receive Date: 20110104
  Receipt Date: 20101213
  Transmission Date: 20110831
  Serious: No
  Sender: FDA-Public Use
  Company Number: US-B.I. PHARMACEUTICALS,INC./RIDGEFIELD-2010-BP-14456BP

PATIENT
  Age: 63 Year
  Sex: Female

DRUGS (7)
  1. FOLIC ACID [Concomitant]
  2. PAROXETINE HCL [Concomitant]
  3. OMEPRAZOLE [Concomitant]
  4. PRADAXA [Suspect]
     Indication: CEREBROVASCULAR ACCIDENT PROPHYLAXIS
  5. PRADAXA [Suspect]
     Indication: ATRIAL FIBRILLATION
     Dosage: 300 MG
     Route: 048
     Dates: start: 20101114
  6. HYOSCYAMINE ER [Concomitant]
     Indication: DIARRHOEA
  7. ANASTROZOLE [Concomitant]

REACTIONS (3)
  - HEADACHE [None]
  - DYSPEPSIA [None]
  - NAUSEA [None]
